FAERS Safety Report 9257003 (Version 1)
Quarter: 2013Q1

REPORT INFORMATION
  Report Type: Spontaneous
  Country: US (occurrence: None)
  Receive Date: 20121211
  Receipt Date: 20121211
  Transmission Date: 20140127
  Serious: Yes (Other)
  Sender: FDA-Public Use
  Company Number: US-SEPTODONT-201200438

PATIENT
  Age: 43 Year
  Sex: Female
  Weight: 59 kg

DRUGS (1)
  1. SCANDONEST L [Suspect]
     Indication: LOCAL ANAESTHESIA
     Dosage: 1 CARTRIDGE AT TOOTH #15 DENTAL
     Dates: start: 20120305

REACTIONS (2)
  - Convulsion [None]
  - Dizziness [None]
